FAERS Safety Report 23397369 (Version 1)
Quarter: 2024Q1

REPORT INFORMATION
  Report Type: Spontaneous
  Country: GB (occurrence: None)
  Receive Date: 20240112
  Receipt Date: 20240112
  Transmission Date: 20240410
  Serious: Yes (Death)
  Sender: FDA-Public Use
  Company Number: 2024A006828

PATIENT
  Sex: Male

DRUGS (1)
  1. ONDEXXYA [Suspect]
     Active Substance: ANDEXANET ALFA
     Indication: Gastrointestinal haemorrhage
     Route: 040

REACTIONS (4)
  - Myocardial infarction [Fatal]
  - Thrombosis [Fatal]
  - Hypersensitivity [Fatal]
  - Gastrointestinal haemorrhage [Fatal]
